FAERS Safety Report 10467899 (Version 1)
Quarter: 2014Q3

REPORT INFORMATION
  Report Type: Spontaneous
  Country: DE (occurrence: DE)
  Receive Date: 20140922
  Receipt Date: 20140922
  Transmission Date: 20150326
  Serious: Yes (Congenital Anomaly, Other)
  Sender: FDA-Public Use
  Company Number: DE-PFIZER INC-2014256518

PATIENT
  Age: 1 Day
  Sex: Male
  Weight: 3.37 kg

DRUGS (9)
  1. RAMIPRIL. [Suspect]
     Active Substance: RAMIPRIL
     Indication: HYPERTENSION
     Dosage: 10 MG, 1X/DAY, (GESTATIONAL WEEK 0 - 6.4)
     Route: 064
     Dates: start: 20130310, end: 20130425
  2. METHYLDOPA. [Concomitant]
     Active Substance: METHYLDOPA
     Indication: HYPERTENSION
     Dosage: 250 MG, 4X/DAY, 7.4. - 35.3. GESTATIONAL WEEK
     Route: 064
     Dates: start: 20130502, end: 20131113
  3. JANUVIA [Suspect]
     Active Substance: SITAGLIPTIN PHOSPHATE
     Indication: MATERNAL EXPOSURE TIMING UNSPECIFIED
  4. METFORMIN HCL [Suspect]
     Active Substance: METFORMIN HYDROCHLORIDE
     Indication: MATERNAL EXPOSURE TIMING UNSPECIFIED
     Dosage: 1000 MG, 2X/DAY, (0. - 6.4. GESTATIONAL WEEK)
     Route: 064
     Dates: start: 20130310, end: 20130425
  5. METFORMIN HCL [Suspect]
     Active Substance: METFORMIN HYDROCHLORIDE
     Indication: TYPE 2 DIABETES MELLITUS
  6. JANUVIA [Suspect]
     Active Substance: SITAGLIPTIN PHOSPHATE
     Indication: TYPE 2 DIABETES MELLITUS
     Dosage: 100 MG, DAILY, (GESTATIONAL WEEK 0 - 6.4)
     Route: 064
     Dates: start: 20130310, end: 20130425
  7. RAMIPRIL. [Suspect]
     Active Substance: RAMIPRIL
     Indication: MATERNAL EXPOSURE TIMING UNSPECIFIED
  8. L-THYROXIN [Concomitant]
     Active Substance: LEVOTHYROXINE SODIUM
     Indication: AUTOIMMUNE THYROIDITIS
     Dosage: 75 UG, DAILY, 0 - 35.3. GESTATIONAL WEEK
     Route: 064
     Dates: start: 20130310, end: 20131113
  9. METOPROLOL [Concomitant]
     Active Substance: METOPROLOL
     Indication: HYPERTENSION
     Dosage: 47.5 MG, 2X/DAY, 7.4. - 35.3. GESTATIONAL WEEK
     Route: 064
     Dates: start: 20130502, end: 20131113

REACTIONS (6)
  - Maternal exposure during pregnancy [Unknown]
  - Diabetic foetopathy [Recovered/Resolved]
  - Foetal exposure during pregnancy [Unknown]
  - Atrial septal defect [Unknown]
  - Large for dates baby [Recovering/Resolving]
  - Premature baby [Unknown]

NARRATIVE: CASE EVENT DATE: 2013
